FAERS Safety Report 19888348 (Version 7)
Quarter: 2024Q4

REPORT INFORMATION
  Report Type: Report from Study
  Country: CA (occurrence: None)
  Receive Date: 20210928
  Receipt Date: 20241125
  Transmission Date: 20250115
  Serious: Yes (Life-Threatening, Other)
  Sender: ORION
  Company Number: CA-ORION CORPORATION ORION PHARMA-TREX2019-4990

PATIENT
  Age: 12 Year
  Sex: Female

DRUGS (56)
  1. METHOTREXATE [Suspect]
     Active Substance: METHOTREXATE
     Indication: Product used for unknown indication
  2. METHOTREXATE [Suspect]
     Active Substance: METHOTREXATE
  3. METHOTREXATE [Suspect]
     Active Substance: METHOTREXATE
  4. CYCLOSPORINE [Suspect]
     Active Substance: CYCLOSPORINE
     Indication: Product used for unknown indication
  5. ILARIS [Suspect]
     Active Substance: CANAKINUMAB
     Indication: Still^s disease
  6. ILARIS [Suspect]
     Active Substance: CANAKINUMAB
  7. ILARIS [Suspect]
     Active Substance: CANAKINUMAB
  8. ILARIS [Suspect]
     Active Substance: CANAKINUMAB
  9. ILARIS [Suspect]
     Active Substance: CANAKINUMAB
  10. ILARIS [Suspect]
     Active Substance: CANAKINUMAB
  11. ILARIS [Suspect]
     Active Substance: CANAKINUMAB
  12. ILARIS [Suspect]
     Active Substance: CANAKINUMAB
  13. ILARIS [Suspect]
     Active Substance: CANAKINUMAB
  14. ILARIS [Suspect]
     Active Substance: CANAKINUMAB
  15. ILARIS [Suspect]
     Active Substance: CANAKINUMAB
  16. ILARIS [Suspect]
     Active Substance: CANAKINUMAB
  17. ILARIS [Suspect]
     Active Substance: CANAKINUMAB
  18. ILARIS [Suspect]
     Active Substance: CANAKINUMAB
  19. ILARIS [Suspect]
     Active Substance: CANAKINUMAB
  20. ILARIS [Suspect]
     Active Substance: CANAKINUMAB
  21. ILARIS [Suspect]
     Active Substance: CANAKINUMAB
  22. ILARIS [Suspect]
     Active Substance: CANAKINUMAB
  23. ILARIS [Suspect]
     Active Substance: CANAKINUMAB
  24. ILARIS [Suspect]
     Active Substance: CANAKINUMAB
  25. ILARIS [Suspect]
     Active Substance: CANAKINUMAB
  26. ILARIS [Suspect]
     Active Substance: CANAKINUMAB
  27. ILARIS [Suspect]
     Active Substance: CANAKINUMAB
  28. ILARIS [Suspect]
     Active Substance: CANAKINUMAB
  29. ILARIS [Suspect]
     Active Substance: CANAKINUMAB
  30. ILARIS [Suspect]
     Active Substance: CANAKINUMAB
  31. ILARIS [Suspect]
     Active Substance: CANAKINUMAB
  32. ILARIS [Suspect]
     Active Substance: CANAKINUMAB
  33. ILARIS [Suspect]
     Active Substance: CANAKINUMAB
  34. ILARIS [Suspect]
     Active Substance: CANAKINUMAB
  35. ILARIS [Suspect]
     Active Substance: CANAKINUMAB
  36. ILARIS [Suspect]
     Active Substance: CANAKINUMAB
  37. ILARIS [Suspect]
     Active Substance: CANAKINUMAB
  38. ILARIS [Suspect]
     Active Substance: CANAKINUMAB
  39. ILARIS [Suspect]
     Active Substance: CANAKINUMAB
  40. ILARIS [Suspect]
     Active Substance: CANAKINUMAB
  41. ILARIS [Suspect]
     Active Substance: CANAKINUMAB
  42. ILARIS [Suspect]
     Active Substance: CANAKINUMAB
  43. ILARIS [Suspect]
     Active Substance: CANAKINUMAB
  44. ILARIS [Suspect]
     Active Substance: CANAKINUMAB
  45. INDOMETHACIN [Concomitant]
     Active Substance: INDOMETHACIN
  46. PREDNISONE [Concomitant]
     Active Substance: PREDNISONE
  47. PREDNISONE [Concomitant]
     Active Substance: PREDNISONE
  48. PREDNISONE [Concomitant]
     Active Substance: PREDNISONE
  49. PREDNISONE [Concomitant]
     Active Substance: PREDNISONE
  50. CYCLOSPORINE [Concomitant]
     Active Substance: CYCLOSPORINE
  51. CYCLOSPORINE [Concomitant]
     Active Substance: CYCLOSPORINE
  52. ACTEMRA [Concomitant]
     Active Substance: TOCILIZUMAB
  53. ACTEMRA [Concomitant]
     Active Substance: TOCILIZUMAB
  54. ACTEMRA [Concomitant]
     Active Substance: TOCILIZUMAB
  55. ACTEMRA [Concomitant]
     Active Substance: TOCILIZUMAB
  56. ANAKINRA [Concomitant]
     Active Substance: ANAKINRA

REACTIONS (18)
  - Drug ineffective [Recovering/Resolving]
  - Therapeutic product effect decreased [Recovered/Resolved]
  - Therapeutic response shortened [Recovered/Resolved]
  - Suicide attempt [Recovered/Resolved]
  - Arthropod bite [Recovered/Resolved]
  - Condition aggravated [Recovered/Resolved]
  - Erythema [Recovered/Resolved]
  - Hepatic enzyme increased [Recovered/Resolved]
  - Pruritus [Recovered/Resolved]
  - Scratch [Recovered/Resolved]
  - Skin lesion [Recovered/Resolved]
  - Still^s disease [Recovered/Resolved]
  - Fatigue [Recovered/Resolved]
  - Urticaria [Recovered/Resolved]
  - Rash [Recovering/Resolving]
  - Stress [Recovering/Resolving]
  - Pyrexia [Recovered/Resolved]
  - Mental impairment [Recovered/Resolved]
